FAERS Safety Report 10243805 (Version 1)
Quarter: 2014Q2

REPORT INFORMATION
  Report Type: Spontaneous
  Country: CN (occurrence: CN)
  Receive Date: 20140618
  Receipt Date: 20140618
  Transmission Date: 20141212
  Serious: Yes (Other)
  Sender: FDA-Public Use
  Company Number: CN-BAYER-2014-086947

PATIENT
  Age: 65 Year
  Sex: Female
  Weight: 87.98 kg

DRUGS (5)
  1. BAYASPIRIN [Suspect]
     Indication: CEREBRAL INFARCTION
     Dosage: 100 MG, QD
     Route: 048
     Dates: start: 20131112, end: 20131125
  2. CLOPIDOGREL SULFATE [Suspect]
     Indication: CORONARY ARTERY DISEASE
     Dosage: 25 MG, QD
     Route: 048
     Dates: start: 20131112, end: 20131125
  3. NIFEDIPINE - SLOW RELEASE [Suspect]
     Indication: HYPERTENSION
     Dosage: 10 MG, BID
     Route: 048
     Dates: start: 20131112, end: 20131125
  4. ENALAPRIL MALEATE [Suspect]
     Indication: HYPERTENSION
     Dosage: 10 MG, BID
     Route: 048
     Dates: start: 20131112, end: 20131125
  5. FENOFIBRATE [Suspect]
     Indication: HYPERTENSION
     Dosage: 0.1 G, TID
     Route: 048
     Dates: start: 20131112, end: 20131125

REACTIONS (1)
  - Hepatic failure [Recovering/Resolving]
